FAERS Safety Report 6693309-2 (Version None)
Quarter: 2010Q2

REPORT INFORMATION
  Report Type: 
  Country: None (occurrence: None)
  Receive Date: 20100421
  Receipt Date: 20100421
  Transmission Date: 20101027
  Serious: Yes (Other)
  Sender: FDA-Public Use
  Company Number: None

PATIENT
  Age: 35 Year
  Sex: Female
  Weight: 64.4108 kg

DRUGS (2)
  1. BRAVELLE [Suspect]
     Indication: INFERTILITY
     Dosage: 300IU DAILY SQ
     Route: 058
     Dates: start: 20100410, end: 20100419
  2. MENOPUR [Suspect]
     Indication: INFERTILITY
     Dosage: 75IU DAILY SQ
     Route: 058
     Dates: start: 20100410, end: 20100419

REACTIONS (2)
  - CIRCUMSTANCE OR INFORMATION CAPABLE OF LEADING TO MEDICATION ERROR [None]
  - MEDICATION ERROR [None]
